FAERS Safety Report 15015451 (Version 1)
Quarter: 2018Q2

REPORT INFORMATION
  Report Type: Spontaneous
  Country: IL (occurrence: IL)
  Receive Date: 20180615
  Receipt Date: 20180615
  Transmission Date: 20180711
  Serious: Yes (Hospitalization, Other)
  Sender: FDA-Public Use
  Company Number: IL-ACTELION-A-CH2018-171549

PATIENT
  Age: 54 Year
  Sex: Female

DRUGS (11)
  1. ALLORIL [Concomitant]
  2. NEOBLOC [Concomitant]
  3. ELIQUIS [Concomitant]
     Active Substance: APIXABAN
  4. ZAROXOLYN [Concomitant]
     Active Substance: METOLAZONE
  5. SILDENAFIL CITRATE. [Concomitant]
     Active Substance: SILDENAFIL CITRATE
  6. NEXIUM [Concomitant]
     Active Substance: ESOMEPRAZOLE MAGNESIUM
  7. FUSID [Concomitant]
     Active Substance: FUROSEMIDE
  8. SLOW K [Concomitant]
     Active Substance: POTASSIUM CHLORIDE
  9. UPTRAVI [Suspect]
     Active Substance: SELEXIPAG
     Indication: PULMONARY ARTERIAL HYPERTENSION
     Dosage: UNK, BID
     Route: 048
     Dates: start: 20180309
  10. UPTRAVI [Suspect]
     Active Substance: SELEXIPAG
     Dosage: 1600 ?G, BID
     Route: 048
     Dates: start: 20180427
  11. CARVEDILOL. [Concomitant]
     Active Substance: CARVEDILOL

REACTIONS (11)
  - Localised oedema [Recovering/Resolving]
  - Renal failure [Not Recovered/Not Resolved]
  - Myalgia [Recovering/Resolving]
  - Blood urea increased [Not Recovered/Not Resolved]
  - Concomitant disease aggravated [Recovering/Resolving]
  - Oxygen consumption increased [Not Recovered/Not Resolved]
  - Pulmonary embolism [Unknown]
  - Blood creatinine increased [Not Recovered/Not Resolved]
  - Mitral valve incompetence [Unknown]
  - Pruritus [Not Recovered/Not Resolved]
  - Drug ineffective [Recovering/Resolving]

NARRATIVE: CASE EVENT DATE: 201804
